FAERS Safety Report 7656692-7 (Version None)
Quarter: 2011Q3

REPORT INFORMATION
  Report Type: 
  Country: None (occurrence: None)
  Receive Date: 20110804
  Receipt Date: 20110729
  Transmission Date: 20111222
  Serious: Yes (Other)
  Sender: FDA-Public Use
  Company Number: US-MERCK-1107USA01127

PATIENT

DRUGS (2)
  1. ZOCOR [Suspect]
     Route: 048
     Dates: start: 20080908, end: 20110101
  2. ZOCOR [Suspect]
     Dosage: CUTTING THE TABLETS
     Route: 048
     Dates: start: 20110101

REACTIONS (4)
  - ADVERSE EVENT [None]
  - WRONG TECHNIQUE IN DRUG USAGE PROCESS [None]
  - MULTIPLE SCLEROSIS [None]
  - CARDIAC DISORDER [None]
